FAERS Safety Report 5893681-7 (Version None)
Quarter: 2008Q3

REPORT INFORMATION
  Report Type: 
  Country: None (occurrence: None)
  Receive Date: 20080923
  Receipt Date: 20071011
  Transmission Date: 20090109
  Serious: No
  Sender: FDA-Public Use
  Company Number: US-ASTRAZENECA-2007UW23716

PATIENT
  Sex: Female
  Weight: 68 kg

DRUGS (7)
  1. SEROQUEL [Suspect]
     Indication: SLEEP DISORDER
     Route: 048
     Dates: start: 19990101
  2. SEROQUEL [Suspect]
     Dosage: 300 MG TID AND 300 MG HS
     Route: 048
     Dates: start: 20070801
  3. LITHIUM CARBONATE [Concomitant]
  4. KLONOPIN [Concomitant]
  5. SYNTHROID [Concomitant]
  6. ULTRAM [Concomitant]
  7. ALBUTEROL [Concomitant]
     Route: 055

REACTIONS (7)
  - AMNESIA [None]
  - CONFUSIONAL STATE [None]
  - DISORIENTATION [None]
  - FEELING ABNORMAL [None]
  - FEELING DRUNK [None]
  - SOMNOLENCE [None]
  - VICTIM OF SEXUAL ABUSE [None]
